FAERS Safety Report 6458965-2 (Version None)
Quarter: 2009Q4

REPORT INFORMATION
  Report Type: 
  Country: None (occurrence: None)
  Receive Date: 20091127
  Receipt Date: 20091116
  Transmission Date: 20100525
  Serious: Yes (Hospitalization, Disabling, Other)
  Sender: FDA-Public Use
  Company Number: US-ELI_LILLY_AND_COMPANY-US200911004323

PATIENT
  Sex: Female

DRUGS (4)
  1. CYMBALTA [Suspect]
     Indication: DEPRESSION
     Dosage: 20 MG, DAILY (1/D)
     Route: 065
  2. HUMALOG MIX 75/25 [Suspect]
     Dosage: 25 IU, EACH MORNING
     Route: 065
  3. HUMALOG MIX 75/25 [Suspect]
     Dosage: 20 IU, EACH EVENING
     Route: 065
  4. NEXIUM [Concomitant]
     Dosage: UNK, UNKNOWN
     Route: 065

REACTIONS (5)
  - BLOOD GLUCOSE FLUCTUATION [None]
  - CARDIAC OPERATION [None]
  - DIABETES MELLITUS [None]
  - GAIT DISTURBANCE [None]
  - NEUROPATHY PERIPHERAL [None]
